FAERS Safety Report 9412504 (Version 1)
Quarter: 2013Q3

REPORT INFORMATION
  Report Type: Spontaneous
  Country: JP (occurrence: None)
  Receive Date: 20130703
  Receipt Date: 20130703
  Transmission Date: 20140515
  Serious: Yes (Hospitalization)
  Sender: FDA-Public Use
  Company Number: 0238904

PATIENT
  Age: 64 Year
  Sex: Female

DRUGS (8)
  1. TACHOSIL [Suspect]
     Indication: PROPHYLAXIS
     Dosage: UNK (1 SHEET OF HALF SIZE)
     Dates: start: 20130129
  2. AMLODIPINE (AMLODIPINE) [Concomitant]
  3. PILSICAINIDE HYDROCHLORIDE [Concomitant]
  4. FLUITRAN [Concomitant]
  5. ARTIST [Concomitant]
  6. UNISIA [Concomitant]
  7. RED BLODD CELL CONCENTRATE (RED BLOOD CELLS, CONCENTRATED) [Concomitant]
  8. ATORVASTATIN [Concomitant]

REACTIONS (1)
  - Perirenal haematoma [None]
